FAERS Safety Report 10298425 (Version 1)
Quarter: 2014Q3

REPORT INFORMATION
  Report Type: Spontaneous
  Country: US (occurrence: US)
  Receive Date: 20140711
  Receipt Date: 20140711
  Transmission Date: 20150326
  Serious: Yes (Other)
  Sender: FDA-Public Use
  Company Number: US-PFIZER INC-2014189523

PATIENT
  Age: 54 Year
  Sex: Female
  Weight: 54.42 kg

DRUGS (1)
  1. GEODON [Suspect]
     Active Substance: ZIPRASIDONE HYDROCHLORIDE\ZIPRASIDONE MESYLATE
     Indication: ANXIETY
     Dosage: UNK

REACTIONS (9)
  - Drug dependence [Unknown]
  - Decreased appetite [Unknown]
  - Feeling abnormal [Unknown]
  - Activities of daily living impaired [Unknown]
  - Hypersomnia [Unknown]
  - Anxiety [Unknown]
  - Fatigue [Unknown]
  - Malaise [Unknown]
  - Drug withdrawal syndrome [Unknown]
